FAERS Safety Report 8992764 (Version 1)
Quarter: 2013Q1

REPORT INFORMATION
  Report Type: Report from Study
  Country: BE (occurrence: BE)
  Receive Date: 20130102
  Receipt Date: 20130102
  Transmission Date: 20140127
  Serious: Yes (Death)
  Sender: FDA-Public Use
  Company Number: BE-ROCHE-1174409

PATIENT
  Age: 69 Year
  Sex: Male

DRUGS (4)
  1. ALTEPLASE [Suspect]
     Indication: ACUTE MYOCARDIAL INFARCTION
     Route: 042
  2. HEPARIN [Concomitant]
     Route: 042
  3. LASIX [Concomitant]
  4. DOBUTREX [Concomitant]

REACTIONS (1)
  - Myocardial infarction [Fatal]
